FAERS Safety Report 13063336 (Version 1)
Quarter: 2016Q4

REPORT INFORMATION
  Report Type: Spontaneous
  Country: DE (occurrence: DE)
  Receive Date: 20161227
  Receipt Date: 20161227
  Transmission Date: 20170207
  Serious: Yes (Hospitalization)
  Sender: FDA-Public Use
  Company Number: DE-B.I. PHARMACEUTICALS,INC./RIDGEFIELD-2016-BI-086573

PATIENT
  Age: 76 Year
  Sex: Male
  Weight: 85.9 kg

DRUGS (1)
  1. JARDIANCE [Suspect]
     Active Substance: EMPAGLIFLOZIN
     Indication: PRODUCT USED FOR UNKNOWN INDICATION
     Route: 048
     Dates: start: 20160930, end: 20161006

REACTIONS (2)
  - Balanoposthitis [Not Recovered/Not Resolved]
  - Circumcision [Not Recovered/Not Resolved]

NARRATIVE: CASE EVENT DATE: 20161004
